FAERS Safety Report 5579889-9 (Version None)
Quarter: 2008Q1

REPORT INFORMATION
  Report Type: 
  Country: None (occurrence: None)
  Receive Date: 20080102
  Receipt Date: 20071221
  Transmission Date: 20080703
  Serious: Yes (Hospitalization, Other)
  Sender: FDA-Public Use
  Company Number: CA-ALLERGAN-0714204US

PATIENT
  Sex: Female
  Weight: 48.526 kg

DRUGS (19)
  1. BOTOX [Suspect]
     Indication: URINARY INCONTINENCE
     Dosage: UNK, SINGLE
     Route: 043
     Dates: start: 20061221, end: 20061221
  2. BOTOX [Suspect]
     Indication: URINARY INCONTINENCE
     Dosage: UNK, SINGLE
     Route: 043
     Dates: start: 20061221, end: 20061221
  3. CELEXA [Concomitant]
     Indication: DEPRESSION
     Dosage: 40 MG, QD
     Route: 048
     Dates: start: 20050601
  4. FOSAMAX [Concomitant]
     Indication: BONE DENSITY DECREASED
     Dosage: 70 MG, Q WEEK
     Route: 048
     Dates: start: 20051201
  5. COPAXONE [Concomitant]
     Indication: MULTIPLE SCLEROSIS
     Dosage: 20 MG, QD
     Route: 058
     Dates: start: 19990301
  6. CENTRUM MULTIVITAMINS [Concomitant]
     Indication: SUPPLEMENTATION THERAPY
     Dosage: UNK, QD
     Route: 048
     Dates: start: 19970101
  7. VITAMIN D [Concomitant]
     Indication: MULTIPLE SCLEROSIS
  8. BACLOFEN [Concomitant]
     Indication: PAIN IN EXTREMITY
     Dosage: 20 MG, QHS
     Route: 048
     Dates: start: 20061113
  9. ASCORBIC ACID [Concomitant]
     Indication: SUPPLEMENTATION THERAPY
     Dosage: 1000 MG, BID
     Route: 048
     Dates: start: 19960101
  10. STRESS B [Concomitant]
     Indication: SUPPLEMENTATION THERAPY
     Dosage: UNK, QD
     Route: 048
     Dates: start: 20030101
  11. OMEGA 3-6-9 [Concomitant]
     Indication: SUPPLEMENTATION THERAPY
     Dosage: UNK, QD
     Route: 048
     Dates: start: 20010101
  12. CORTISONE ACETATE TAB [Concomitant]
     Indication: ARTHRITIS
     Dosage: UNK, UNKNOWN
     Route: 030
     Dates: start: 20040101, end: 20060601
  13. CORTISONE ACETATE TAB [Concomitant]
     Indication: OSTEOARTHRITIS
     Dosage: UNK, UNKNOWN
     Route: 030
     Dates: start: 20060801
  14. CORTISONE ACETATE TAB [Concomitant]
     Dosage: UNK, UNKNOWN
     Route: 030
     Dates: start: 20061001
  15. PENNSAID [Concomitant]
     Indication: OSTEOARTHRITIS
     Dosage: UNK, PRN
     Route: 061
     Dates: start: 20061001
  16. TYLENOL EXTRA-STRENGTH [Concomitant]
     Indication: HEADACHE
     Dosage: 1000 MG, PRN
     Route: 048
     Dates: start: 19900101
  17. NORFLOXACIN [Concomitant]
     Indication: URINARY TRACT INFECTION
     Dosage: 400 MG, BID
     Route: 048
     Dates: start: 20070117, end: 20070124
  18. ALEVE [Concomitant]
     Indication: ARTHRALGIA
     Dosage: 250 MG, UNK
     Dates: start: 20070123
  19. CIPROFLOXACIN HCL [Concomitant]
     Indication: URINARY TRACT INFECTION
     Dosage: 500 MG, BID
     Route: 048
     Dates: start: 20070201

REACTIONS (3)
  - DEEP VEIN THROMBOSIS [None]
  - LUNG NEOPLASM MALIGNANT [None]
  - SUBARACHNOID HAEMORRHAGE [None]
